FAERS Safety Report 6773940-6 (Version None)
Quarter: 2010Q2

REPORT INFORMATION
  Report Type: 
  Country: None (occurrence: None)
  Receive Date: 20100617
  Receipt Date: 20100604
  Transmission Date: 20101027
  Serious: No
  Sender: FDA-Public Use
  Company Number: PHHY2010US36668

PATIENT
  Age: 75 Year
  Sex: Female
  Weight: 73.8 kg

DRUGS (3)
  1. TASIGNA [Suspect]
     Indication: CHRONIC MYELOID LEUKAEMIA
     Dosage: 400 MG, BID
     Route: 048
     Dates: start: 20090604
  2. TASIGNA [Suspect]
     Dosage: 200 MG, TID
  3. TARCEVA [Concomitant]
     Indication: CHRONIC MYELOID LEUKAEMIA
     Dosage: 200 MG, TID
     Route: 048
     Dates: start: 20090401

REACTIONS (1)
  - INCORRECT DOSE ADMINISTERED [None]
